FAERS Safety Report 4628910-0 (Version None)
Quarter: 2005Q1

REPORT INFORMATION
  Report Type: 
  Country: None (occurrence: None)
  Receive Date: 20050107
  Receipt Date: 20041101
  Transmission Date: 20050727
  Serious: No
  Sender: FDA-Public Use
  Company Number: 230213M04USA

PATIENT
  Sex: Female

DRUGS (5)
  1. REBIF [Suspect]
     Indication: MULTIPLE SCLEROSIS
  2. NEURONTIN [Concomitant]
  3. FELDENE [Concomitant]
  4. LEVOTHROID [Concomitant]
  5. BACLOFEN [Concomitant]

REACTIONS (2)
  - ALOPECIA [None]
  - FEELING HOT [None]
